FAERS Safety Report 16742272 (Version 3)
Quarter: 2019Q4

REPORT INFORMATION
  Report Type: Report from Study
  Country: GB (occurrence: GB)
  Receive Date: 20190826
  Receipt Date: 20191204
  Transmission Date: 20200122
  Serious: Yes (Hospitalization)
  Sender: FDA-Public Use
  Company Number: GB-AMGEN-GBRCT2019135994

PATIENT
  Age: 58 Year
  Sex: Male
  Weight: 79.4 kg

DRUGS (4)
  1. CYCLOPHOSPHAMIDE. [Suspect]
     Active Substance: CYCLOPHOSPHAMIDE
     Indication: PLASMA CELL MYELOMA
     Dosage: 500 MILLIGRAM
     Route: 048
     Dates: start: 20190502, end: 20190808
  2. CARFILZOMIB [Suspect]
     Active Substance: CARFILZOMIB
     Indication: PLASMA CELL MYELOMA
     Dosage: 100 MILLIGRAM, PER CHEMO REGIM
     Route: 042
     Dates: start: 20190502, end: 20190809
  3. FLUCLOXACILLINE [FLUCLOXACILLIN] [Concomitant]
     Indication: CELLULITIS
     Dosage: 125 MILLIGRAM, QID
     Route: 048
     Dates: start: 20190808, end: 20190813
  4. DEXAMETHASONE. [Suspect]
     Active Substance: DEXAMETHASONE
     Indication: PLASMA CELL MYELOMA
     Dosage: 40 MILLIGRAM, PER CHEMO REGIM
     Route: 048
     Dates: start: 20190502, end: 20190808

REACTIONS (2)
  - Sinus bradycardia [Recovered/Resolved]
  - Skin infection [Recovered/Resolved]

NARRATIVE: CASE EVENT DATE: 20190813
